FAERS Safety Report 25982701 (Version 2)
Quarter: 2025Q4

REPORT INFORMATION
  Report Type: Spontaneous
  Country: IR (occurrence: IR)
  Receive Date: 20251031
  Receipt Date: 20251107
  Transmission Date: 20260119
  Serious: Yes (Life-Threatening, Hospitalization, Other)
  Sender: ACCORD
  Company Number: IR-Accord-510740

PATIENT
  Age: 36 Year
  Sex: Female

DRUGS (6)
  1. PROGESTERONE [Suspect]
     Active Substance: PROGESTERONE
     Indication: Product used for unknown indication
  2. HYDROXYCHLOROQUINE [Suspect]
     Active Substance: HYDROXYCHLOROQUINE
     Indication: Failed in vitro fertilisation
     Dosage: 200MG TWICE DAILY
  3. TRIAMCINOLONE [Suspect]
     Active Substance: TRIAMCINOLONE
     Indication: Toxic epidermal necrolysis
     Dosage: TOPICAL CREAM OF TRIAMCINOLONE TWICE DAILY
     Route: 061
  4. CHLORPHENIRAMINE [Suspect]
     Active Substance: CHLORPHENIRAMINE
     Indication: Toxic epidermal necrolysis
  5. PREDNISOLONE [Suspect]
     Active Substance: PREDNISOLONE
     Indication: Toxic epidermal necrolysis
  6. LORATADINE [Suspect]
     Active Substance: LORATADINE
     Indication: Toxic epidermal necrolysis

REACTIONS (2)
  - Toxic epidermal necrolysis [Recovered/Resolved]
  - Maternal exposure during pregnancy [Unknown]
